FAERS Safety Report 19333024 (Version 3)
Quarter: 2021Q3

REPORT INFORMATION
  Report Type: Spontaneous
  Country: BR (occurrence: BR)
  Receive Date: 20210529
  Receipt Date: 20210921
  Transmission Date: 20211014
  Serious: Yes (Other)
  Sender: FDA-Public Use
  Company Number: NVSC2021BR120562

PATIENT
  Age: 86 Year
  Sex: Female

DRUGS (3)
  1. EXELON [Suspect]
     Active Substance: RIVASTIGMINE TARTRATE
     Indication: PRODUCT USED FOR UNKNOWN INDICATION
     Dosage: 1.9 MG, QD, 4.5 MG RIVASTIGMINE BASE, PATCH 2.5 (CM2)
     Route: 062
  2. EXELON [Suspect]
     Active Substance: RIVASTIGMINE TARTRATE
     Dosage: 9.5 MG, QD, 18 MG RIVASTIGMINE BASE, PATCH 10 (CM2)
     Route: 062
  3. EXELON [Suspect]
     Active Substance: RIVASTIGMINE TARTRATE
     Dosage: 9.5 MG, QD PATCH 10 (CM2) 30 SIST
     Route: 062

REACTIONS (6)
  - Application site bruise [Unknown]
  - Dementia Alzheimer^s type [Unknown]
  - Application site pruritus [Unknown]
  - Therapeutic response unexpected [Unknown]
  - Application site hypersensitivity [Unknown]
  - Product adhesion issue [Unknown]
